FAERS Safety Report 19470275 (Version 1)
Quarter: 2021Q2

REPORT INFORMATION
  Report Type: Spontaneous
  Country: HN (occurrence: HN)
  Receive Date: 20210628
  Receipt Date: 20210628
  Transmission Date: 20210717
  Serious: Yes (Other)
  Sender: FDA-Public Use
  Company Number: HN-PFIZER INC-2021745805

PATIENT
  Age: 65 Year
  Sex: Male

DRUGS (3)
  1. LIPITOR [Suspect]
     Active Substance: ATORVASTATIN CALCIUM
     Dosage: 80 MG, DAILY
     Route: 048
     Dates: start: 2021
  2. LIPITOR [Suspect]
     Active Substance: ATORVASTATIN CALCIUM
     Dosage: 20MG
     Dates: start: 2019
  3. LIPITOR [Suspect]
     Active Substance: ATORVASTATIN CALCIUM
     Dosage: 40 MG

REACTIONS (3)
  - Memory impairment [Unknown]
  - Mental disorder [Unknown]
  - Cerebral microinfarction [Unknown]
